FAERS Safety Report 7138342-1 (Version None)
Quarter: 2010Q4

REPORT INFORMATION
  Report Type: 
  Country: None (occurrence: None)
  Receive Date: 20101206
  Receipt Date: 20101123
  Transmission Date: 20110411
  Serious: Yes (Congenital Anomaly, Other)
  Sender: FDA-Public Use
  Company Number: GXKR2010IT13282

PATIENT
  Sex: Female
  Weight: 1.42 kg

DRUGS (2)
  1. PAROXETINE (NGX) [Suspect]
     Dosage: 5 MG/DAY DURING THE FIRST 2 MONTHS OF GESTATION (MATERNAL DOSE)
     Route: 064
  2. PAROXETINE (NGX) [Suspect]
     Dosage: 20 MG/DAY FOR THE PRECEDING THREE WEEKS OF GESTATION (MATERNAL DOSE)
     Route: 064

REACTIONS (19)
  - ATRIAL SEPTAL DEFECT [None]
  - CONGENITAL ANOMALY [None]
  - CONGENITAL NOSE MALFORMATION [None]
  - DRUG EXPOSURE DURING PREGNANCY [None]
  - DRUG WITHDRAWAL SYNDROME NEONATAL [None]
  - DYSMORPHISM [None]
  - DYSPNOEA [None]
  - EXOPHTHALMOS [None]
  - FEELING JITTERY [None]
  - HYPERREFLEXIA [None]
  - HYPERTELORISM OF ORBIT [None]
  - HYPERTONIA NEONATAL [None]
  - IRRITABILITY [None]
  - NASAL CONGESTION [None]
  - NEONATAL RESPIRATORY DEPRESSION [None]
  - PSYCHOMOTOR HYPERACTIVITY [None]
  - PULMONARY ARTERY STENOSIS CONGENITAL [None]
  - RIGHT AORTIC ARCH [None]
  - TACHYPNOEA [None]
